FAERS Safety Report 12458102 (Version 1)
Quarter: 2016Q2

REPORT INFORMATION
  Report Type: Report from Study
  Country: US (occurrence: US)
  Receive Date: 20160613
  Receipt Date: 20160613
  Transmission Date: 20160815
  Serious: No
  Sender: FDA-Public Use
  Company Number: US-AMGEN-USASL2016070968

PATIENT
  Age: 52 Year
  Sex: Female

DRUGS (1)
  1. ENBREL [Suspect]
     Active Substance: ETANERCEPT
     Indication: RHEUMATOID ARTHRITIS
     Dosage: 50 MG, QWK
     Route: 065
     Dates: start: 2005, end: 20160507

REACTIONS (12)
  - Pruritus [Unknown]
  - Swollen tongue [Unknown]
  - Lip swelling [Unknown]
  - Eye swelling [Unknown]
  - Skin ulcer [Unknown]
  - Hypersensitivity [Unknown]
  - Peripheral swelling [Unknown]
  - Herpes zoster [Unknown]
  - Rash [Unknown]
  - Generalised oedema [Recovering/Resolving]
  - Swelling face [Unknown]
  - Oedema peripheral [Not Recovered/Not Resolved]

NARRATIVE: CASE EVENT DATE: 20160119
